FAERS Safety Report 6258356-3 (Version None)
Quarter: 2009Q3

REPORT INFORMATION
  Report Type: 
  Country: None (occurrence: None)
  Receive Date: 20090707
  Receipt Date: 20090625
  Transmission Date: 20100115
  Serious: Yes (Other)
  Sender: FDA-Public Use
  Company Number: US-ELI_LILLY_AND_COMPANY-US200906006500

PATIENT
  Sex: Male

DRUGS (5)
  1. STRATTERA [Suspect]
     Indication: ATTENTION DEFICIT/HYPERACTIVITY DISORDER
     Dosage: 40 MG, DAILY (1/D)
     Route: 065
     Dates: start: 20020101
  2. NABUMETONE [Concomitant]
     Dosage: 750 MG, 2/D
     Route: 065
  3. VITAMINS [Concomitant]
     Dosage: UNK, UNKNOWN
     Route: 065
  4. CITALOPRAM HYDROBROMIDE [Concomitant]
     Dosage: 10 MG, DAILY (1/D)
     Route: 065
  5. RHINOCORT [Concomitant]
     Dosage: 32 UG, UNKNOWN
     Route: 065

REACTIONS (7)
  - ARTHRALGIA [None]
  - BODY HEIGHT DECREASED [None]
  - DECREASED APPETITE [None]
  - JUVENILE ARTHRITIS [None]
  - OEDEMA PERIPHERAL [None]
  - OVERDOSE [None]
  - RAYNAUD'S PHENOMENON [None]
